FAERS Safety Report 19576863 (Version 1)
Quarter: 2021Q3

REPORT INFORMATION
  Report Type: Spontaneous
  Country: US (occurrence: US)
  Receive Date: 20210719
  Receipt Date: 20210719
  Transmission Date: 20211014
  Serious: No
  Sender: FDA-Public Use
  Company Number: US-MACLEODS PHARMACEUTICALS US LTD-MAC2021031900

PATIENT

DRUGS (1)
  1. OLMESARTAN/AMLODIPINE 40/10 MG TABLET [Suspect]
     Active Substance: AMLODIPINE\OLMESARTAN
     Indication: PRODUCT USED FOR UNKNOWN INDICATION
     Dosage: 1 DOSAGE FORM, PILLS
     Route: 065

REACTIONS (3)
  - Formication [Unknown]
  - Pruritus [Unknown]
  - Joint swelling [Unknown]
